FAERS Safety Report 9717528 (Version 2)
Quarter: 2015Q3

REPORT INFORMATION
  Report Type: Spontaneous
  Country: US (occurrence: US)
  Receive Date: 20131127
  Receipt Date: 20150804
  Transmission Date: 20151125
  Serious: No
  Sender: FDA-Public Use
  Company Number: US-GILEAD-2009-0020851

PATIENT
  Age: 71 Year
  Sex: Female

DRUGS (16)
  1. LETAIRIS [Suspect]
     Active Substance: AMBRISENTAN
     Indication: PULMONARY ARTERIAL HYPERTENSION
     Route: 048
     Dates: start: 20090225
  2. LASIX [Concomitant]
     Active Substance: FUROSEMIDE
  3. ALDACTONE [Concomitant]
     Active Substance: SPIRONOLACTONE
  4. SINGULAIR [Concomitant]
     Active Substance: MONTELUKAST SODIUM
  5. CITALOPRAM [Concomitant]
     Active Substance: CITALOPRAM HYDROBROMIDE
  6. ZOCOR [Concomitant]
     Active Substance: SIMVASTATIN
  7. VICODIN ES [Concomitant]
     Active Substance: ACETAMINOPHEN\HYDROCODONE BITARTRATE
  8. ASPIRIN. [Concomitant]
     Active Substance: ASPIRIN
  9. ATENOLOL. [Concomitant]
     Active Substance: ATENOLOL
  10. PROTONIX [Concomitant]
     Active Substance: PANTOPRAZOLE SODIUM
  11. AMBIEN [Concomitant]
     Active Substance: ZOLPIDEM TARTRATE
  12. LYRICA [Concomitant]
     Active Substance: PREGABALIN
  13. COLCHICINE. [Concomitant]
     Active Substance: COLCHICINE
  14. SYNTHROID [Concomitant]
     Active Substance: LEVOTHYROXINE SODIUM
  15. ADVAIR HFA [Concomitant]
     Active Substance: FLUTICASONE PROPIONATE\SALMETEROL XINAFOATE
  16. KLOR-CON [Concomitant]
     Active Substance: POTASSIUM CHLORIDE

REACTIONS (4)
  - Dyspnoea [Unknown]
  - Peripheral swelling [Unknown]
  - Palpitations [Unknown]
  - Fluid retention [Unknown]
